FAERS Safety Report 14377437 (Version 2)
Quarter: 2018Q2

REPORT INFORMATION
  Report Type: Spontaneous
  Country: US (occurrence: US)
  Receive Date: 20180111
  Receipt Date: 20180517
  Transmission Date: 20180711
  Serious: Yes (Other)
  Sender: FDA-Public Use
  Company Number: US-DSJP-DSU-2017-145019

PATIENT

DRUGS (1)
  1. BENICAR HCT [Suspect]
     Active Substance: HYDROCHLOROTHIAZIDE\OLMESARTAN MEDOXOMIL
     Indication: PRODUCT USED FOR UNKNOWN INDICATION
     Dosage: 40/25 MG , UNK
     Dates: start: 20050418, end: 20130314

REACTIONS (7)
  - Polyp [Recovering/Resolving]
  - Haemorrhoids [Unknown]
  - Gastritis [Not Recovered/Not Resolved]
  - Diverticulum [Unknown]
  - Diverticulitis [Recovering/Resolving]
  - Crohn^s disease [Recovering/Resolving]
  - Rectal haemorrhage [Unknown]

NARRATIVE: CASE EVENT DATE: 20060106
